FAERS Safety Report 24418227 (Version 2)
Quarter: 2025Q3

REPORT INFORMATION
  Report Type: Report from Study
  Country: US (occurrence: US)
  Receive Date: 20241009
  Receipt Date: 20250809
  Transmission Date: 20251020
  Serious: Yes (Other)
  Sender: ALEXION PHARMACEUTICALS
  Company Number: US-AstraZeneca-CH-00716289A

PATIENT
  Sex: Female

DRUGS (1)
  1. TAGRISSO [Suspect]
     Active Substance: OSIMERTINIB

REACTIONS (5)
  - Neoplasm progression [Unknown]
  - Decreased appetite [Unknown]
  - Ageusia [Unknown]
  - Eating disorder [Unknown]
  - Taste disorder [Unknown]
